FAERS Safety Report 5649920-0 (Version None)
Quarter: 2008Q1

REPORT INFORMATION
  Report Type: 
  Country: None (occurrence: None)
  Receive Date: 20080304
  Receipt Date: 20080228
  Transmission Date: 20080703
  Serious: Yes (Death, Life-Threatening)
  Sender: FDA-Public Use
  Company Number: DE-BAYER-200814097GPV

PATIENT
  Age: 88 Year
  Sex: Female

DRUGS (41)
  1. CIPRO [Suspect]
     Indication: CYSTITIS
     Dosage: UNIT DOSE: 250 MG
     Route: 048
     Dates: start: 20030825, end: 20030825
  2. CIPRO [Suspect]
     Dosage: UNIT DOSE: 250 MG
     Route: 048
     Dates: start: 20030820, end: 20030823
  3. FUROSEMID [Suspect]
     Indication: OEDEMA
     Route: 042
     Dates: start: 20030818, end: 20030823
  4. FUROSEMID [Suspect]
     Route: 048
     Dates: start: 20030823, end: 20030908
  5. CORVATON RETARD [Suspect]
     Indication: CORONARY ARTERY DISEASE
     Route: 048
     Dates: start: 20030816, end: 20030908
  6. FURO [Suspect]
     Indication: OEDEMA
     Route: 042
     Dates: start: 20030817, end: 20030817
  7. NOVALGIN [Suspect]
     Indication: PAIN
     Route: 048
     Dates: start: 20030817, end: 20030818
  8. CEFTRIAXONE [Suspect]
     Indication: CYSTITIS
     Route: 042
     Dates: start: 20030822, end: 20030829
  9. KLACID [Suspect]
     Indication: PNEUMONIA
     Route: 048
     Dates: start: 20030822, end: 20030830
  10. BENURON [Suspect]
     Indication: PYREXIA
     Route: 054
     Dates: start: 20030904, end: 20030907
  11. BENURON [Suspect]
     Route: 054
     Dates: start: 20030829, end: 20030829
  12. BENURON [Suspect]
     Route: 054
     Dates: start: 20030822, end: 20030822
  13. DICLOFENAC RATIOPHARM [Concomitant]
     Indication: PAIN
     Route: 060
     Dates: start: 20000101, end: 20030815
  14. HYDERGINE [Concomitant]
     Indication: NERVOUS SYSTEM DISORDER
     Route: 048
     Dates: start: 20000101, end: 20030815
  15. EATAN [Concomitant]
     Indication: SLEEP DISORDER
     Route: 048
     Dates: start: 20000101, end: 20030815
  16. NITROLINGUAL N [Concomitant]
     Indication: CORONARY ARTERY DISEASE
     Route: 060
     Dates: start: 20000101, end: 20030815
  17. MOLSIDOMIN RATIOPHARM [Concomitant]
     Indication: CORONARY ARTERY DISEASE
     Dosage: UNIT DOSE: 8 MG
     Route: 048
     Dates: start: 20000101, end: 20030815
  18. BEZABETA [Concomitant]
     Indication: HYPERCHOLESTEROLAEMIA
     Route: 048
     Dates: start: 20000101, end: 20030815
  19. RANITIDIN RATIOPHARM [Concomitant]
     Indication: PROPHYLAXIS
     Route: 048
     Dates: start: 20000101, end: 20030117
  20. ISOSORBIDE DINITRATE [Concomitant]
     Indication: CORONARY ARTERY DISEASE
     Dosage: UNIT DOSE: 10 MG
     Route: 048
     Dates: start: 20000101, end: 20030901
  21. ASPIRIN [Concomitant]
     Indication: THROMBOSIS PROPHYLAXIS
     Dosage: UNIT DOSE: 100 MG
     Route: 048
     Dates: start: 20000101
  22. MEDIVITAN N [Concomitant]
     Indication: VITAMIN SUPPLEMENTATION
     Route: 030
     Dates: start: 20030815, end: 20030815
  23. KALINOR [Concomitant]
     Indication: MINERAL SUPPLEMENTATION
     Route: 048
     Dates: start: 20030816, end: 20030820
  24. SODIUM CHLORIDE [Concomitant]
     Indication: HYPOVOLAEMIA
     Route: 042
     Dates: start: 20030820, end: 20030821
  25. SODIUM CHLORIDE [Concomitant]
     Route: 042
     Dates: start: 20030816, end: 20030818
  26. CALCIUM [Concomitant]
     Indication: MINERAL SUPPLEMENTATION
     Route: 042
     Dates: start: 20030817, end: 20030820
  27. CALCIUM [Concomitant]
     Route: 048
     Dates: start: 20030825
  28. LAVASEPT [Concomitant]
     Indication: SKIN ULCER
     Route: 061
     Dates: start: 20030817
  29. AQUAPHOR [Concomitant]
     Indication: OEDEMA
     Dosage: UNIT DOSE: 20 MG
     Route: 048
     Dates: start: 20030817
  30. SCANDICAIN [Concomitant]
     Indication: ANAESTHESIA
     Route: 058
     Dates: start: 20030829, end: 20030829
  31. ECURAL [Concomitant]
     Indication: RASH
     Route: 061
     Dates: start: 20030831, end: 20030907
  32. AUGMENTIN '125' [Concomitant]
     Indication: PNEUMONIA
     Route: 048
     Dates: start: 20030903, end: 20030905
  33. NOVALGIN [Concomitant]
     Route: 042
     Dates: start: 20030908, end: 20030908
  34. NOVALGIN [Concomitant]
     Route: 048
     Dates: start: 20030904, end: 20030904
  35. LOPERAMID [Concomitant]
     Indication: DIARRHOEA
     Route: 048
     Dates: start: 20030906, end: 20030906
  36. DIFLUCAN [Concomitant]
     Indication: CANDIDIASIS
     Route: 048
     Dates: start: 20030907, end: 20030907
  37. DIAZEPAM [Concomitant]
     Indication: SLEEP DISORDER
     Route: 048
     Dates: start: 20030907, end: 20030907
  38. TAVEGIL [Concomitant]
     Indication: PRURITUS
     Route: 048
     Dates: start: 20030907, end: 20030908
  39. MORPHINE [Concomitant]
     Indication: PAIN
     Route: 048
     Dates: start: 20030908, end: 20030908
  40. MORPHINE [Concomitant]
     Route: 058
     Dates: start: 20030908, end: 20030908
  41. TPN ELECTROLYTES IN PLASTIC CONTAINER [Concomitant]
     Indication: HYPOVOLAEMIA
     Route: 042
     Dates: start: 20030908, end: 20030908

REACTIONS (8)
  - BLISTER [None]
  - LIP EROSION [None]
  - ORAL MUCOSA EROSION [None]
  - PRURITUS [None]
  - PYREXIA [None]
  - RASH [None]
  - STEVENS-JOHNSON SYNDROME [None]
  - TOXIC EPIDERMAL NECROLYSIS [None]
